FAERS Safety Report 6083965-4 (Version None)
Quarter: 2009Q1

REPORT INFORMATION
  Report Type: 
  Country: None (occurrence: None)
  Receive Date: 20090217
  Receipt Date: 20090217
  Transmission Date: 20090719
  Serious: No
  Sender: FDA-Public Use
  Company Number: None

PATIENT
  Age: 84 Year
  Sex: Male
  Weight: 55 kg

DRUGS (1)
  1. MORPHINE [Suspect]
     Dosage: 4 MG OTHER SQ
     Route: 058
     Dates: start: 20080411, end: 20080413

REACTIONS (5)
  - BRADYCARDIA [None]
  - CHEST PAIN [None]
  - CONFUSIONAL STATE [None]
  - LETHARGY [None]
  - VOMITING [None]
